FAERS Safety Report 7783812-6 (Version None)
Quarter: 2011Q3

REPORT INFORMATION
  Report Type: 
  Country: None (occurrence: None)
  Receive Date: 20110928
  Receipt Date: 20110708
  Transmission Date: 20111222
  Serious: No
  Sender: FDA-Public Use
  Company Number: US-BAYER-2011-060383

PATIENT
  Sex: Female

DRUGS (12)
  1. VITAMIN B6 [Concomitant]
  2. IMDUR [Concomitant]
  3. ZESTRIL [Concomitant]
  4. MICRONASE [Concomitant]
  5. ALEVE (CAPLET) [Suspect]
     Indication: ANALGESIC THERAPY
     Dosage: 1 TABLET USED ONLY ONE TIME
     Route: 048
  6. ACETYLSALICYLIC ACID SRT [Concomitant]
  7. CALCIUM CARBONATE [Concomitant]
  8. CARDIZEM [Concomitant]
  9. DYAZIDE [Concomitant]
  10. ZOCOR [Concomitant]
  11. DETROL [Concomitant]
  12. TIMOPTIC [Concomitant]

REACTIONS (1)
  - FOREIGN BODY [None]
